FAERS Safety Report 24215406 (Version 4)
Quarter: 2024Q4

REPORT INFORMATION
  Report Type: Report from Study
  Country: US (occurrence: US)
  Receive Date: 20240816
  Receipt Date: 20241125
  Transmission Date: 20250115
  Serious: Yes (Hospitalization, Other)
  Sender: ACADIA PHARMACEUTICALS
  Company Number: US-ACADIA PHARMACEUTICALS INC.-ACA-2024-PIM-003871

PATIENT
  Age: 80 Year
  Sex: Female

DRUGS (18)
  1. NUPLAZID [Suspect]
     Active Substance: PIMAVANSERIN TARTRATE
     Indication: Hallucination
     Dosage: 34 MILLIGRAM, QD
     Route: 048
     Dates: start: 20230621, end: 20240710
  2. NUPLAZID [Suspect]
     Active Substance: PIMAVANSERIN TARTRATE
     Indication: Psychotic disorder
     Dosage: 34 MILLIGRAM, QD
     Route: 048
  3. NUPLAZID [Suspect]
     Active Substance: PIMAVANSERIN TARTRATE
     Indication: Parkinson^s disease
  4. NUPLAZID [Suspect]
     Active Substance: PIMAVANSERIN TARTRATE
     Indication: Parkinson^s disease psychosis
     Dosage: UNK, 1 DAILY
     Route: 048
  5. CARBIDOPA\LEVODOPA [Concomitant]
     Active Substance: CARBIDOPA\LEVODOPA
  6. ESCITALOPRAM [Concomitant]
     Active Substance: ESCITALOPRAM OXALATE
  7. DICLOFENAC [Concomitant]
     Active Substance: DICLOFENAC
  8. VITAMIN D2 [Concomitant]
     Active Substance: ERGOCALCIFEROL
  9. IPRATROPIUM [Concomitant]
     Active Substance: IPRATROPIUM
  10. QUETIAPINE FUMARATE [Concomitant]
     Active Substance: QUETIAPINE FUMARATE
  11. ATORVASTATIN [Concomitant]
     Active Substance: ATORVASTATIN
  12. GABAPENTIN [Concomitant]
     Active Substance: GABAPENTIN
  13. HYDROXYZINE [Concomitant]
     Active Substance: HYDROXYZINE HYDROCHLORIDE
  14. AMLODIPINE [Concomitant]
     Active Substance: AMLODIPINE BESYLATE
  15. TRAMADOL [Concomitant]
     Active Substance: TRAMADOL
  16. ACETAMINOPHEN\HYDROCODONE [Concomitant]
     Active Substance: ACETAMINOPHEN\HYDROCODONE
  17. CEFTIN [Concomitant]
     Active Substance: CEFUROXIME AXETIL
  18. SENNOSIDES A AND B [Concomitant]
     Active Substance: SENNOSIDES A AND B

REACTIONS (13)
  - Urinary retention [Recovered/Resolved]
  - Colitis [Recovered/Resolved]
  - Spinal operation [Not Recovered/Not Resolved]
  - Compression fracture [Not Recovered/Not Resolved]
  - Hallucination [Unknown]
  - Hallucination [Recovered/Resolved]
  - Enema administration [Recovered/Resolved]
  - Pyrexia [Recovered/Resolved]
  - Urinary tract infection [Recovered/Resolved]
  - Culture urine positive [Recovered/Resolved]
  - Bladder catheterisation [Recovered/Resolved]
  - Constipation [Recovered/Resolved]
  - Product dose omission issue [Recovered/Resolved]

NARRATIVE: CASE EVENT DATE: 20240501
